FAERS Safety Report 22726816 (Version 3)
Quarter: 2024Q4

REPORT INFORMATION
  Report Type: Spontaneous
  Country: US (occurrence: US)
  Receive Date: 20230720
  Receipt Date: 20241011
  Transmission Date: 20250115
  Serious: No
  Sender: IPSEN
  Company Number: US-EPIZYME, INC-2020USEPIZYME0147

PATIENT
  Age: 61 Year
  Sex: Male
  Weight: 102 kg

DRUGS (18)
  1. TAZVERIK [Suspect]
     Active Substance: TAZEMETOSTAT HYDROBROMIDE
     Indication: Follicular lymphoma
     Dosage: 800 MG, BID
     Route: 048
  2. TAZVERIK [Suspect]
     Active Substance: TAZEMETOSTAT HYDROBROMIDE
     Indication: Follicular lymphoma stage II
  3. CHAGA [Concomitant]
  4. ENALAPRIL [Concomitant]
     Active Substance: ENALAPRIL
     Dosage: 5 MG
  5. FIBER THERAPY (CALCIUM POLYCARBOPHIL) [Concomitant]
     Active Substance: CALCIUM POLYCARBOPHIL
     Dosage: 625 MG
  6. HYDROCODONE [Concomitant]
     Active Substance: HYDROCODONE
     Dosage: 5MG/325MG
  7. LIVALO [Concomitant]
     Active Substance: PITAVASTATIN CALCIUM
     Dosage: 1 MG
  8. ONDANSETRON [Concomitant]
     Active Substance: ONDANSETRON
     Dosage: 4 MG
  9. PANTOPRAZOLE [Concomitant]
     Active Substance: PANTOPRAZOLE
     Dosage: 40 MG
  10. PROCHLORPERAZINE [Concomitant]
     Active Substance: PROCHLORPERAZINE
     Dosage: 10 MG
  11. SERTRALINE [Concomitant]
     Active Substance: SERTRALINE HYDROCHLORIDE
     Dosage: 25 MG
  12. ULORIC [Concomitant]
     Active Substance: FEBUXOSTAT
     Dosage: 80 MG
  13. CLARITHROMYCIN [Concomitant]
     Active Substance: CLARITHROMYCIN
     Dosage: UNK
  14. ACETAMINOPHEN [Concomitant]
     Active Substance: ACETAMINOPHEN
  15. REVLIMID [Concomitant]
     Active Substance: LENALIDOMIDE
  16. ASPIRIN [Concomitant]
     Active Substance: ASPIRIN
  17. ZYDELIG [Concomitant]
     Active Substance: IDELALISIB
  18. NORCO [Concomitant]
     Active Substance: ACETAMINOPHEN\HYDROCODONE BITARTRATE

REACTIONS (6)
  - Dysgeusia [Unknown]
  - Fatigue [Unknown]
  - Sinusitis [Unknown]
  - White blood cell count decreased [Unknown]
  - Fatigue [Not Recovered/Not Resolved]
  - Product dose omission issue [Unknown]

NARRATIVE: CASE EVENT DATE: 20201231
